FAERS Safety Report 4661531-2 (Version None)
Quarter: 2005Q2

REPORT INFORMATION
  Report Type: 
  Country: None (occurrence: None)
  Receive Date: 20050513
  Receipt Date: 20050506
  Transmission Date: 20051028
  Serious: Yes (Hospitalization)
  Sender: FDA-Public Use
  Company Number: US-KINGPHARMUSA00001-K200500596

PATIENT
  Age: 51 Year
  Sex: Male

DRUGS (1)
  1. ALTACE [Suspect]
     Dosage: 5 MG QD
     Route: 048

REACTIONS (8)
  - BALANCE DISORDER [None]
  - CONFUSIONAL STATE [None]
  - DYSGEUSIA [None]
  - HYPOAESTHESIA [None]
  - MEMORY IMPAIRMENT [None]
  - MUSCLE TWITCHING [None]
  - PERIPHERAL COLDNESS [None]
  - TINNITUS [None]
